FAERS Safety Report 14837996 (Version 4)
Quarter: 2018Q4

REPORT INFORMATION
  Report Type: Report from Study
  Country: US (occurrence: US)
  Receive Date: 20180502
  Receipt Date: 20181207
  Transmission Date: 20190204
  Serious: Yes (Hospitalization)
  Sender: FDA-Public Use
  Company Number: PHHY2018US016984

PATIENT
  Age: 54 Year
  Sex: Female
  Weight: 83.91 kg

DRUGS (2)
  1. BOTOX [Concomitant]
     Active Substance: ONABOTULINUMTOXINA
     Indication: MUSCLE SPASTICITY
     Dosage: 100 U, UNK
     Route: 030
     Dates: start: 20161117, end: 20170802
  2. GILENYA [Suspect]
     Active Substance: FINGOLIMOD HYDROCHLORIDE
     Indication: MULTIPLE SCLEROSIS
     Dosage: 0.5 MG, QD
     Route: 048
     Dates: start: 20170206

REACTIONS (3)
  - Cellulitis [Recovered/Resolved]
  - Soft tissue swelling [Unknown]
  - Wound infection [Recovered/Resolved]

NARRATIVE: CASE EVENT DATE: 20170803
